FAERS Safety Report 18044752 (Version 1)
Quarter: 2020Q3

REPORT INFORMATION
  Report Type: Spontaneous
  Country: SE (occurrence: SE)
  Receive Date: 20200720
  Receipt Date: 20200720
  Transmission Date: 20201103
  Serious: Yes (Other)
  Sender: FDA-Public Use
  Company Number: SE-PFIZER INC-2020272824

PATIENT
  Age: 76 Year
  Sex: Male
  Weight: 77 kg

DRUGS (1)
  1. VIAGRA [Suspect]
     Active Substance: SILDENAFIL CITRATE
     Indication: ERECTILE DYSFUNCTION
     Dosage: 1 DF, SINGLE
     Dates: start: 20200625, end: 20200625

REACTIONS (4)
  - Penile blister [Recovered/Resolved]
  - Penile haemorrhage [Recovered/Resolved]
  - Blister [Recovered/Resolved]
  - Nasal crusting [Recovered/Resolved]

NARRATIVE: CASE EVENT DATE: 202006
